FAERS Safety Report 13416903 (Version 1)
Quarter: 2017Q2

REPORT INFORMATION
  Report Type: Spontaneous
  Country: GB (occurrence: GB)
  Receive Date: 20170406
  Receipt Date: 20170406
  Transmission Date: 20170830
  Serious: Yes (Other)
  Sender: FDA-Public Use
  Company Number: GB-GLAXOSMITHKLINE-GB2017GSK047367

PATIENT
  Sex: Male

DRUGS (2)
  1. TROBALT [Suspect]
     Active Substance: EZOGABINE
     Dosage: 100 MG, QD
  2. TROBALT [Suspect]
     Active Substance: EZOGABINE
     Indication: PRODUCT USED FOR UNKNOWN INDICATION
     Dosage: 1200 MG, QD
     Dates: start: 2014, end: 201703

REACTIONS (4)
  - Chromaturia [Unknown]
  - Seizure [Not Recovered/Not Resolved]
  - Skin discolouration [Unknown]
  - Quality of life decreased [Unknown]

NARRATIVE: CASE EVENT DATE: 201701
